FAERS Safety Report 7051279-1 (Version None)
Quarter: 2010Q4

REPORT INFORMATION
  Report Type: 
  Country: None (occurrence: None)
  Receive Date: 20101013
  Receipt Date: 20100930
  Transmission Date: 20110411
  Serious: Yes (Life-Threatening)
  Sender: FDA-Public Use
  Company Number: 019657

PATIENT
  Sex: Female
  Weight: 58.1 kg

DRUGS (5)
  1. CERTOLIZUMAB PEGOL [Suspect]
     Indication: RHEUMATOID ARTHRITIS
     Dosage: SEE IMAGE
     Route: 058
     Dates: start: 20100204, end: 20100830
  2. METHOTREXATE [Concomitant]
  3. FOLIC ACID [Concomitant]
  4. LIPITOR [Concomitant]
  5. PYRIDOXINE HCL [Concomitant]

REACTIONS (4)
  - ABDOMINAL PAIN UPPER [None]
  - BLOOD ALKALINE PHOSPHATASE INCREASED [None]
  - PLATELET COUNT INCREASED [None]
  - PNEUMONIA [None]
